FAERS Safety Report 9287147 (Version 5)
Quarter: 2014Q3

REPORT INFORMATION
  Report Type: Spontaneous
  Country: US (occurrence: US)
  Receive Date: 20130513
  Receipt Date: 20140731
  Transmission Date: 20150326
  Serious: No
  Sender: FDA-Public Use
  Company Number: US-009507513-1305USA006966

PATIENT
  Sex: Male
  Weight: 95.24 kg

DRUGS (2)
  1. PROPECIA [Suspect]
     Active Substance: FINASTERIDE
     Indication: ALOPECIA AREATA
     Dosage: 1 MG, QD
     Route: 048
     Dates: start: 1995
  2. PROPECIA [Suspect]
     Active Substance: FINASTERIDE
     Indication: ANDROGENETIC ALOPECIA
     Dosage: 1.25 MG, QD
     Route: 048

REACTIONS (14)
  - Libido disorder [Recovered/Resolved]
  - Hyperlipidaemia [Unknown]
  - Hernia repair [Unknown]
  - Benign prostatic hyperplasia [Unknown]
  - Foot operation [Unknown]
  - Erectile dysfunction [Recovering/Resolving]
  - Sexual dysfunction [Not Recovered/Not Resolved]
  - Knee operation [Unknown]
  - Wrong technique in drug usage process [Unknown]
  - Vasectomy [Unknown]
  - Neck pain [Unknown]
  - Off label use [Unknown]
  - Cardiomegaly [Unknown]
  - Cognitive disorder [Not Recovered/Not Resolved]

NARRATIVE: CASE EVENT DATE: 2004
